FAERS Safety Report 6645393-X (Version None)
Quarter: 2010Q1

REPORT INFORMATION
  Report Type: 
  Country: None (occurrence: None)
  Receive Date: 20100322
  Receipt Date: 20100321
  Transmission Date: 20100710
  Serious: Yes (Hospitalization)
  Sender: FDA-Public Use
  Company Number: IL-ABBOTT-10P-082-0631399-00

PATIENT
  Age: 60 Year
  Sex: Male

DRUGS (3)
  1. HUMIRA [Suspect]
     Indication: CROHN'S DISEASE
     Route: 058
     Dates: start: 20091201, end: 20100101
  2. PREDNISONE TAB [Concomitant]
     Indication: CROHN'S DISEASE
     Dosage: 10/40 MG
     Route: 048
     Dates: start: 20090101
  3. COUMADIN [Concomitant]
     Indication: VASCULITIS
     Route: 048

REACTIONS (2)
  - CHRONIC OBSTRUCTIVE PULMONARY DISEASE [None]
  - VASCULITIS [None]
